FAERS Safety Report 4443063-X (Version None)
Quarter: 2004Q3

REPORT INFORMATION
  Report Type: 
  Country: None (occurrence: None)
  Receive Date: 20040903
  Receipt Date: 20040628
  Transmission Date: 20050211
  Serious: Yes (Other)
  Sender: FDA-Public Use
  Company Number: 2004UW13409

PATIENT
  Age: 52 Year
  Sex: Male
  Weight: 79.3795 kg

DRUGS (4)
  1. CRESTOR [Suspect]
     Dosage: 10 MG PO
     Route: 048
  2. ALLOPURINOL [Concomitant]
  3. INDOMETHACIN 25MG CAP [Concomitant]
  4. COLCHICINE [Concomitant]

REACTIONS (1)
  - GOUT [None]
